FAERS Safety Report 18550098 (Version 2)
Quarter: 2020Q4

REPORT INFORMATION
  Report Type: Spontaneous
  Country: IN (occurrence: IN)
  Receive Date: 20201126
  Receipt Date: 20201201
  Transmission Date: 20210114
  Serious: Yes (Other)
  Sender: FDA-Public Use
  Company Number: IN-PFIZER INC-2020464886

PATIENT
  Age: 81 Year
  Sex: Male
  Weight: 56.3 kg

DRUGS (5)
  1. DACOPLICE [Suspect]
     Active Substance: DACOMITINIB
     Dosage: 45 MG, 1X/DAY
     Route: 048
     Dates: start: 20201123
  2. ZOLFRESH [Concomitant]
     Active Substance: ZOLPIDEM TARTRATE
     Dosage: 5 MG, AS NEEDED (AT BEDTIME)
  3. CLINDAMYCIN. [Concomitant]
     Active Substance: CLINDAMYCIN
     Indication: LYMPHADENOPATHY
     Dosage: UNK
  4. DACOPLICE [Suspect]
     Active Substance: DACOMITINIB
     Dosage: UNK
  5. PERINORM [Concomitant]
     Dosage: 1 DF, AS NEEDED

REACTIONS (3)
  - Second primary malignancy [Unknown]
  - Sinus bradycardia [Unknown]
  - Lung adenocarcinoma [Unknown]
